FAERS Safety Report 8007123-9 (Version None)
Quarter: 2011Q4

REPORT INFORMATION
  Report Type: 
  Country: None (occurrence: None)
  Receive Date: 20111227
  Receipt Date: 20111220
  Transmission Date: 20120403
  Serious: Yes (Other)
  Sender: FDA-Public Use
  Company Number: CA-B.I. PHARMACEUTICALS,INC./RIDGEFIELD-2011-CN-01998CN

PATIENT

DRUGS (2)
  1. PRADAXA [Suspect]
     Indication: PULMONARY EMBOLISM
     Dosage: 300 MG
  2. PRADAXA [Suspect]
     Indication: DEEP VEIN THROMBOSIS

REACTIONS (1)
  - TRANSIENT ISCHAEMIC ATTACK [None]
